FAERS Safety Report 5878290-8 (Version None)
Quarter: 2008Q3

REPORT INFORMATION
  Report Type: 
  Country: None (occurrence: None)
  Receive Date: 20080911
  Receipt Date: 20080902
  Transmission Date: 20090109
  Serious: Yes (Disabling)
  Sender: FDA-Public Use
  Company Number: GB-PFIZER INC-2008073819

PATIENT
  Age: 62 Year
  Sex: Female
  Weight: 66 kg

DRUGS (5)
  1. CHANTIX [Suspect]
     Indication: SMOKING CESSATION THERAPY
     Route: 048
     Dates: start: 20080314, end: 20080804
  2. ACETAMINOPHEN W/ CODEINE [Concomitant]
     Indication: BACK PAIN
     Route: 048
     Dates: start: 20080110
  3. MEBEVERINE [Concomitant]
     Indication: ABDOMINAL PAIN
     Route: 048
     Dates: start: 20080110
  4. THIAMINE HCL [Concomitant]
     Indication: ALCOHOL ABUSE
     Route: 048
     Dates: start: 20071016
  5. TRAZODONE HCL [Concomitant]
     Indication: DEPRESSION
     Route: 048
     Dates: start: 20071109

REACTIONS (1)
  - ALCOHOLISM [None]
